FAERS Safety Report 8489550-9 (Version None)
Quarter: 2012Q3

REPORT INFORMATION
  Report Type: 
  Country: None (occurrence: None)
  Receive Date: 20120705
  Receipt Date: 20120702
  Transmission Date: 20120928
  Serious: No
  Sender: FDA-Public Use
  Company Number: US-PFIZER INC-2011234214

PATIENT
  Sex: Female

DRUGS (6)
  1. KLONOPIN [Concomitant]
     Dosage: UNK
  2. WELLBUTRIN [Concomitant]
     Dosage: UNK
  3. LYRICA [Suspect]
     Indication: POST HERPETIC NEURALGIA
     Dosage: 75 MG, 2X/DAY
  4. SOMA [Concomitant]
     Dosage: UNK
  5. LUNESTA [Concomitant]
     Dosage: UNK
  6. ACYCLOVIR [Concomitant]
     Dosage: UNK

REACTIONS (5)
  - DYSPHEMIA [None]
  - INSOMNIA [None]
  - GAIT DISTURBANCE [None]
  - IMPAIRED DRIVING ABILITY [None]
  - FEELING ABNORMAL [None]
